FAERS Safety Report 5963937-8 (Version None)
Quarter: 2008Q4

REPORT INFORMATION
  Report Type: 
  Country: None (occurrence: None)
  Receive Date: 20081124
  Receipt Date: 20081120
  Transmission Date: 20090506
  Serious: Yes (Hospitalization, Other)
  Sender: FDA-Public Use
  Company Number: AR-ABBOTT-08P-007-0488827-00

PATIENT
  Age: 6 Year
  Sex: Male
  Weight: 33 kg

DRUGS (2)
  1. SEVORANE LIQUID FOR INHALATION [Suspect]
     Indication: INDUCTION OF ANAESTHESIA
     Dosage: FORM OF ADMINISTRATION: VAPORIZATION
     Route: 055
     Dates: start: 20081111, end: 20081111
  2. FENTANYL-100 [Concomitant]
     Indication: ANAESTHETIC PREMEDICATION
     Route: 042
     Dates: start: 20081111, end: 20081111

REACTIONS (3)
  - ACUTE PULMONARY OEDEMA [None]
  - CONVULSION [None]
  - HEMIPARESIS [None]
